FAERS Safety Report 9152327 (Version 1)
Quarter: 2013Q1

REPORT INFORMATION
  Report Type: Spontaneous
  Country: GB (occurrence: GB)
  Receive Date: 20130308
  Receipt Date: 20130308
  Transmission Date: 20140127
  Serious: Yes (Other)
  Sender: FDA-Public Use
  Company Number: PHHY2013GB021186

PATIENT
  Age: 62 Year
  Sex: Male

DRUGS (2)
  1. DOCETAXEL [Suspect]
  2. ZYTIGA [Suspect]

REACTIONS (2)
  - Gastrointestinal disorder [Unknown]
  - Onychoclasis [Unknown]
